FAERS Safety Report 8834289 (Version 1)
Quarter: 2012Q4

REPORT INFORMATION
  Report Type: 
  Country: DK (occurrence: FR)
  Receive Date: 20121010
  Receipt Date: 20121010
  Transmission Date: 20130627
  Serious: Yes (Hospitalization)
  Sender: FDA-Public Use
  Company Number: FR-SHIRE-ALL1-2012-04750

PATIENT
  Age: 82 Year
  Sex: Male

DRUGS (6)
  1. 426 (MIDODRINE) [Suspect]
     Indication: PRODUCT USED FOR UNKNOWN INDICATION
     Dosage: 7.5 mg, 1x/day:qd
     Route: 048
  2. ZOMETA [Suspect]
     Indication: METASTASES TO BONE
     Dosage: 1 DF, Unknown
     Route: 041
     Dates: start: 201208
  3. CASODEX [Suspect]
     Indication: PROSTATE CANCER
     Dosage: 50 mg, Unknown
  4. IMOVANE [Suspect]
     Indication: PRODUCT USED FOR UNKNOWN INDICATION
     Dosage: UNK, Unknown
     Route: 065
  5. CETIRIZINE [Suspect]
     Indication: RASH
     Dosage: UNK, Unknown
     Route: 065
  6. OXYCODONE HYDCHLORIDE [Suspect]
     Indication: BONE PAIN
     Dosage: UNK, Unknown
     Route: 065

REACTIONS (1)
  - Parotitis [Recovered/Resolved]
